FAERS Safety Report 7376199-4 (Version None)
Quarter: 2011Q1

REPORT INFORMATION
  Report Type: 
  Country: None (occurrence: None)
  Receive Date: 20110325
  Receipt Date: 20110318
  Transmission Date: 20110831
  Serious: Yes (Death, Hospitalization, Other)
  Sender: FDA-Public Use
  Company Number: US-CELGENEUS-163-21880-11032248

PATIENT
  Age: 75 Year
  Sex: Male

DRUGS (12)
  1. TAMSULOSIN HCL [Concomitant]
     Route: 065
  2. DEXAMETHASONE [Concomitant]
     Route: 065
     Dates: start: 20091201, end: 20100401
  3. DIGOXIN [Concomitant]
     Route: 065
  4. LACTULOSE [Concomitant]
     Route: 065
  5. FLUOXETINE [Concomitant]
     Route: 065
  6. NEPHROVITE [Concomitant]
     Route: 065
  7. ASPIRIN [Concomitant]
     Route: 065
  8. LEVOTHROID [Concomitant]
     Route: 065
  9. ONDANSETRON [Concomitant]
     Route: 065
  10. FLECAINIDE ACETATE [Concomitant]
     Route: 065
  11. REVLIMID [Suspect]
     Indication: MULTIPLE MYELOMA
     Dosage: 25 MILLIGRAM
     Route: 048
     Dates: start: 20091201, end: 20100401
  12. GABAPENTIN [Concomitant]
     Route: 065

REACTIONS (2)
  - MULTIPLE MYELOMA [None]
  - DEATH [None]
